FAERS Safety Report 7844914-9 (Version None)
Quarter: 2011Q4

REPORT INFORMATION
  Report Type: 
  Country: None (occurrence: None)
  Receive Date: 20111025
  Receipt Date: 20101104
  Transmission Date: 20120403
  Serious: No
  Sender: FDA-Public Use
  Company Number: US-BAYER-201040793NA

PATIENT
  Age: 38 Year
  Sex: Female
  Weight: 62.727 kg

DRUGS (3)
  1. ULTRAVIST 370 [Suspect]
     Indication: ENDOMETRIOSIS
     Dosage: LEFT ANTECUBITAL USING POWER INJECTOR @ A RATE OF 2.2 AND A WARMER AT 37.5 CELCIUS
     Route: 042
     Dates: start: 20101104, end: 20101104
  2. BARIUM [Concomitant]
     Indication: COMPUTERISED TOMOGRAM
     Dosage: UNK UNK, ONCE
     Route: 048
     Dates: start: 20101104, end: 20101104
  3. ULTRAVIST 370 [Suspect]
     Indication: COMPUTERISED TOMOGRAM ABDOMEN

REACTIONS (2)
  - ERYTHEMA [None]
  - URTICARIA [None]
